FAERS Safety Report 10783920 (Version 2)
Quarter: 2015Q3

REPORT INFORMATION
  Report Type: Spontaneous
  Country: SE (occurrence: SE)
  Receive Date: 20150210
  Receipt Date: 20150729
  Transmission Date: 20151125
  Serious: Yes (Hospitalization, Disabling)
  Sender: FDA-Public Use
  Company Number: SE-AMGEN-SWESP2015011967

PATIENT
  Age: 74 Year
  Sex: Female
  Weight: 70 kg

DRUGS (6)
  1. OMEPRAZOL                          /00661201/ [Concomitant]
     Active Substance: OMEPRAZOLE
     Dosage: 20 MG, 1X/DAY
     Dates: start: 2009
  2. ENBREL [Suspect]
     Active Substance: ETANERCEPT
     Indication: RHEUMATOID ARTHRITIS
     Dosage: 25 MG, 2X/WEEK
     Route: 058
     Dates: start: 199907, end: 20150203
  3. SOBRIL [Concomitant]
     Active Substance: OXAZEPAM
     Dosage: 15 MG, 1X/DAY
     Dates: start: 1999
  4. LOMUDAL [Concomitant]
     Dosage: 1 DROP IN EACH EYE DAILY
     Dates: start: 2001
  5. PREDNISOLONE. [Concomitant]
     Active Substance: PREDNISOLONE
     Dosage: 2.5 MG, 1X/DAY
     Dates: start: 1999
  6. NAPROSYN ENTERO [Concomitant]
     Dosage: 250 MG, 2X/DAY
     Dates: start: 1999

REACTIONS (2)
  - Scleritis [Recovering/Resolving]
  - Keratorhexis [Recovering/Resolving]
